FAERS Safety Report 9513964 (Version 3)
Quarter: 2013Q4

REPORT INFORMATION
  Report Type: Spontaneous
  Country: US (occurrence: US)
  Receive Date: 20130910
  Receipt Date: 20131011
  Transmission Date: 20140711
  Serious: Yes (Death, Life-Threatening, Hospitalization, Disabling, Other)
  Sender: FDA-Public Use
  Company Number: US-009507513-1309USA002859

PATIENT
  Age: 64 Year
  Sex: Female
  Weight: 103 kg

DRUGS (9)
  1. FOSAMAX [Suspect]
     Indication: OSTEOPOROSIS
     Dosage: 35 MG, QW
  2. LOVENOX [Concomitant]
  3. NORVASC [Concomitant]
  4. PROTONIX [Concomitant]
  5. PROZAC [Concomitant]
  6. NEURONTIN [Concomitant]
  7. ABILIFY [Concomitant]
  8. WELLBUTRIN [Concomitant]
  9. PREDNISONE [Concomitant]
     Route: 048

REACTIONS (9)
  - Knee arthroplasty [Not Recovered/Not Resolved]
  - Gastrostomy [Not Recovered/Not Resolved]
  - Mechanical ventilation [Not Recovered/Not Resolved]
  - Dyspnoea [Not Recovered/Not Resolved]
  - Asthenia [Not Recovered/Not Resolved]
  - Aspiration [Not Recovered/Not Resolved]
  - Acute respiratory failure [Not Recovered/Not Resolved]
  - Pneumonia aspiration [Fatal]
  - Incorrect route of drug administration [Unknown]
